FAERS Safety Report 8383779-6 (Version None)
Quarter: 2012Q2

REPORT INFORMATION
  Report Type: 
  Country: None (occurrence: None)
  Receive Date: 20120524
  Receipt Date: 20120521
  Transmission Date: 20120825
  Serious: Yes (Hospitalization, Other)
  Sender: FDA-Public Use
  Company Number: BR-ABBOTT-12P-020-0926409-00

PATIENT
  Age: 51 Year
  Sex: Female

DRUGS (5)
  1. UNKNOWN DRUG [Concomitant]
     Indication: CARDIAC DISORDER
  2. UNKNOWN DRUG [Concomitant]
     Indication: HYPERTENSION
  3. PREDNISONE [Concomitant]
     Indication: PRODUCT USED FOR UNKNOWN INDICATION
  4. METHOTREXATE [Concomitant]
     Indication: PRODUCT USED FOR UNKNOWN INDICATION
  5. HUMIRA [Suspect]
     Indication: RHEUMATOID ARTHRITIS
     Dates: start: 20120322, end: 20120401

REACTIONS (2)
  - BRAIN NEOPLASM [None]
  - HEADACHE [None]
